FAERS Safety Report 13910986 (Version 1)
Quarter: 2017Q3

REPORT INFORMATION
  Report Type: Spontaneous
  Country: BR (occurrence: BR)
  Receive Date: 20170828
  Receipt Date: 20170828
  Transmission Date: 20171127
  Serious: Yes (Other)
  Sender: FDA-Public Use
  Company Number: BR-PFIZER INC-2017370650

PATIENT
  Age: 34 Year
  Sex: Female
  Weight: 46 kg

DRUGS (2)
  1. DOSTINEX [Suspect]
     Active Substance: CABERGOLINE
     Dosage: 0.5 MG, WEEKLY
     Dates: start: 2015, end: 2015
  2. DOSTINEX [Suspect]
     Active Substance: CABERGOLINE
     Indication: HYPERPROLACTINAEMIA
     Dosage: 0.5 MG, WEEKLY
     Dates: start: 2014, end: 2015

REACTIONS (1)
  - Obstructed labour [Unknown]

NARRATIVE: CASE EVENT DATE: 2015
